FAERS Safety Report 5266162-1 (Version None)
Quarter: 2007Q1

REPORT INFORMATION
  Report Type: 
  Country: None (occurrence: None)
  Receive Date: 20070315
  Receipt Date: 20070308
  Transmission Date: 20070707
  Serious: Yes (Other)
  Sender: FDA-Public Use
  Company Number: US-JNJFOC-20061203121

PATIENT
  Age: 86 Year
  Sex: Male

DRUGS (2)
  1. TYLENOL (CAPLET) [Suspect]
     Route: 065
  2. TYLENOL (CAPLET) [Suspect]
     Indication: PAIN
     Route: 065

REACTIONS (4)
  - FAECES DISCOLOURED [None]
  - HAEMATOCHEZIA [None]
  - HAEMATOCRIT DECREASED [None]
  - HAEMOGLOBIN DECREASED [None]
